FAERS Safety Report 20855997 (Version 2)
Quarter: 2022Q2

REPORT INFORMATION
  Report Type: Report from Study
  Country: US (occurrence: US)
  Receive Date: 20220520
  Receipt Date: 20220623
  Transmission Date: 20220721
  Serious: Yes (Other)
  Sender: FDA-Public Use
  Company Number: US-TAKEDA-2021TUS029782

PATIENT
  Age: 51 Year
  Sex: Male
  Weight: 84 kg

DRUGS (23)
  1. HUMAN IMMUNOGLOBULIN G [Suspect]
     Active Substance: HUMAN IMMUNOGLOBULIN G
     Indication: Selective IgG subclass deficiency
     Dosage: 25 GRAM, Q2WEEKS
     Route: 058
     Dates: start: 20210504, end: 20210525
  2. HUMAN IMMUNOGLOBULIN G [Suspect]
     Active Substance: HUMAN IMMUNOGLOBULIN G
     Indication: Immune system disorder
     Dosage: 25 GRAM, Q2WEEKS
     Route: 058
     Dates: start: 20210504
  3. DIPHENHYDRAMINE [Concomitant]
     Active Substance: DIPHENHYDRAMINE
     Dosage: UNK
     Route: 065
  4. EPINEPHRINE [Concomitant]
     Active Substance: EPINEPHRINE
     Dosage: UNK
     Route: 065
  5. ONDANSETRON HCL [Concomitant]
     Active Substance: ONDANSETRON HYDROCHLORIDE
     Dosage: UNK
     Route: 065
  6. TESTOSTERONE [Concomitant]
     Active Substance: TESTOSTERONE
     Dosage: UNK
     Route: 065
  7. WELCHOL [Concomitant]
     Active Substance: COLESEVELAM HYDROCHLORIDE
     Indication: Blood cholesterol
     Dosage: UNK
     Route: 065
  8. CIALIS [Concomitant]
     Active Substance: TADALAFIL
     Dosage: UNK
     Route: 065
  9. ACETAMINOPHEN [Concomitant]
     Active Substance: ACETAMINOPHEN
     Dosage: UNK
     Route: 065
  10. DICYCLOMINE HYDROCHLORIDE [Concomitant]
     Active Substance: DICYCLOMINE HYDROCHLORIDE
     Dosage: UNK
     Route: 065
  11. ATROPINE\DIPHENOXYLATE [Concomitant]
     Active Substance: ATROPINE\DIPHENOXYLATE
     Dosage: UNK
     Route: 065
  12. NORVASC [Concomitant]
     Active Substance: AMLODIPINE BESYLATE
     Dosage: UNK
     Route: 065
  13. LIDOCAINE [Concomitant]
     Active Substance: LIDOCAINE
     Dosage: UNK
     Route: 065
  14. DICYCLOMINE [Concomitant]
     Active Substance: DICYCLOMINE HYDROCHLORIDE
  15. FOLIC ACID [Concomitant]
     Active Substance: FOLIC ACID
     Indication: Folate deficiency
     Dosage: 5 MILLIGRAM, QD
  16. ALPRAZOLAM [Concomitant]
     Active Substance: ALPRAZOLAM
     Dosage: 2 MILLIGRAM, TID
  17. VITAMINS [Concomitant]
     Active Substance: VITAMINS
  18. LOMOTIL [Concomitant]
     Active Substance: ATROPINE SULFATE\DIPHENOXYLATE HYDROCHLORIDE
     Indication: Irritable bowel syndrome
  19. AMLODIPINE [Concomitant]
     Active Substance: AMLODIPINE BESYLATE
     Indication: Hypertension
     Dosage: UNK UNK, QD
  20. PRILOSEC [Concomitant]
     Active Substance: OMEPRAZOLE MAGNESIUM
     Indication: Gastrooesophageal reflux disease
     Dosage: UNK, QD
  21. PRILOSEC [Concomitant]
     Active Substance: OMEPRAZOLE MAGNESIUM
     Indication: Hiatus hernia
  22. VITAMIN D3 [Concomitant]
     Active Substance: CHOLECALCIFEROL
     Dosage: 1500 MILLIGRAM
  23. VITAMIN D3 [Concomitant]
     Active Substance: CHOLECALCIFEROL
     Dosage: 2500 MILLIGRAM

REACTIONS (34)
  - Cholecystectomy [Unknown]
  - Adverse reaction [Recovered/Resolved]
  - COVID-19 immunisation [Recovering/Resolving]
  - Gastrointestinal disorder [Unknown]
  - COVID-19 [Recovered/Resolved]
  - Food poisoning [Unknown]
  - Viral infection [Unknown]
  - Illness [Recovering/Resolving]
  - Infusion site vesicles [Recovering/Resolving]
  - Hiatus hernia [Unknown]
  - Folate deficiency [Unknown]
  - Gastrooesophageal reflux disease [Unknown]
  - Infusion site nodule [Recovered/Resolved]
  - Infusion site haemorrhage [Unknown]
  - Insomnia [Unknown]
  - Oropharyngeal pain [Unknown]
  - Abdominal distension [Unknown]
  - Dyspepsia [Unknown]
  - Malaise [Unknown]
  - Infusion site bruising [Unknown]
  - Infusion site extravasation [Unknown]
  - Infusion site swelling [Unknown]
  - Pyrexia [Not Recovered/Not Resolved]
  - Diarrhoea [Unknown]
  - Headache [Unknown]
  - Nausea [Unknown]
  - Device use issue [Recovered/Resolved]
  - Product temperature excursion issue [Unknown]
  - Gastroenteritis viral [Unknown]
  - Fatigue [Unknown]
  - Gastrointestinal disorder [Unknown]
  - Infusion site mass [Unknown]
  - Dizziness [Unknown]
  - Product dose omission issue [Unknown]

NARRATIVE: CASE EVENT DATE: 20210609
